FAERS Safety Report 4384784-7 (Version None)
Quarter: 2004Q2

REPORT INFORMATION
  Report Type: 
  Country: None (occurrence: None)
  Receive Date: 20040621
  Receipt Date: 20040614
  Transmission Date: 20050107
  Serious: Yes (Hospitalization)
  Sender: FDA-Public Use
  Company Number: TCI2004A02278

PATIENT
  Age: 70 Year
  Sex: Female

DRUGS (10)
  1. ACTOS [Suspect]
     Indication: DIABETES MELLITUS NON-INSULIN-DEPENDENT
     Dosage: 15 MG (15MG, 1 IN 1 D), PER ORAL
     Route: 048
     Dates: start: 20040526, end: 20040602
  2. GLYBURIDE [Concomitant]
  3. CARVEDILOL [Concomitant]
  4. ENALAPRIL MALEATE [Concomitant]
  5. ASPIRIN [Concomitant]
  6. ISOSORBIDE MONONITRATE [Concomitant]
  7. SIMVASTATIN [Concomitant]
  8. FAMOTIDINE [Concomitant]
  9. SUCRALFATE [Concomitant]
  10. MAGNESIUM OXIDE [Concomitant]

REACTIONS (2)
  - PETECHIAE [None]
  - PLATELET COUNT DECREASED [None]
